FAERS Safety Report 9713964 (Version 2)
Quarter: 2015Q3

REPORT INFORMATION
  Report Type: Spontaneous
  Country: US (occurrence: US)
  Receive Date: 20131126
  Receipt Date: 20150803
  Transmission Date: 20151125
  Serious: No
  Sender: FDA-Public Use
  Company Number: US-GILEAD-2008-0018344

PATIENT
  Age: 79 Year
  Sex: Female
  Weight: 99.79 kg

DRUGS (1)
  1. LETAIRIS [Suspect]
     Active Substance: AMBRISENTAN
     Indication: PULMONARY ARTERIAL HYPERTENSION
     Route: 048
     Dates: start: 20080801

REACTIONS (5)
  - Dyspnoea [None]
  - Kidney infection [None]
  - Angina pectoris [None]
  - Cystitis [None]
  - Hepatic pain [None]
